FAERS Safety Report 16392607 (Version 1)
Quarter: 2019Q2

REPORT INFORMATION
  Report Type: Spontaneous
  Country: FR (occurrence: FR)
  Receive Date: 20190605
  Receipt Date: 20190605
  Transmission Date: 20190711
  Serious: Yes (Congenital Anomaly)
  Sender: FDA-Public Use
  Company Number: FR-TEVA-2019-FR-1057754

PATIENT
  Age: 21 Year
  Sex: Male
  Weight: 71 kg

DRUGS (1)
  1. FINASTERIDE. [Suspect]
     Active Substance: FINASTERIDE
     Indication: DIFFUSE ALOPECIA
     Dosage: 1 DOSAGE FORMS DAILY;
     Route: 048
     Dates: start: 20080101, end: 20140101

REACTIONS (2)
  - Hydrocele [Unknown]
  - Varicocele [Unknown]

NARRATIVE: CASE EVENT DATE: 20130808
